FAERS Safety Report 4958181-7 (Version None)
Quarter: 2006Q1

REPORT INFORMATION
  Report Type: 
  Country: None (occurrence: None)
  Receive Date: 20060330
  Receipt Date: 20060321
  Transmission Date: 20060701
  Serious: Yes (Hospitalization)
  Sender: FDA-Public Use
  Company Number: 2006PK00576

PATIENT
  Age: 42 Year
  Sex: Male
  Weight: 80.4 kg

DRUGS (9)
  1. SEROQUEL [Suspect]
     Indication: SCHIZOAFFECTIVE DISORDER
     Route: 048
     Dates: start: 20050601, end: 20051108
  2. SEROQUEL [Suspect]
     Route: 048
     Dates: start: 20051109, end: 20051109
  3. ZYPREXA [Suspect]
     Indication: SCHIZOAFFECTIVE DISORDER
     Route: 048
     Dates: start: 20051110, end: 20051110
  4. ZYPREXA [Suspect]
     Route: 048
     Dates: start: 20051111, end: 20051111
  5. ZYPREXA [Suspect]
     Route: 048
     Dates: start: 20051112, end: 20051113
  6. ZYPREXA [Suspect]
     Route: 048
     Dates: start: 20051114, end: 20051128
  7. ERGENYL [Concomitant]
     Indication: SCHIZOAFFECTIVE DISORDER
     Route: 048
     Dates: end: 20051120
  8. ERGENYL [Concomitant]
     Route: 048
     Dates: start: 20051121, end: 20051228
  9. ERGENYL [Concomitant]
     Route: 048
     Dates: start: 20051229

REACTIONS (2)
  - ATRIAL FIBRILLATION [None]
  - SUPRAVENTRICULAR EXTRASYSTOLES [None]
